FAERS Safety Report 11816417 (Version 5)
Quarter: 2017Q1

REPORT INFORMATION
  Report Type: Report from Study
  Country: CA (occurrence: CA)
  Receive Date: 20151209
  Receipt Date: 20170209
  Transmission Date: 20170428
  Serious: Yes (Hospitalization, Other)
  Sender: FDA-Public Use
  Company Number: CA-AMGEN-CANSL2015130008

PATIENT
  Age: 75 Year
  Sex: Female
  Weight: 45.35 kg

DRUGS (1)
  1. PROLIA [Suspect]
     Active Substance: DENOSUMAB
     Indication: OSTEOPOROSIS
     Dosage: 60 MG, Q6MO
     Route: 065
     Dates: start: 20130508, end: 20150505

REACTIONS (6)
  - Pain in extremity [Not Recovered/Not Resolved]
  - Femur fracture [Recovered/Resolved]
  - Fall [Unknown]
  - Mobility decreased [Unknown]
  - Mucous membrane disorder [Unknown]
  - Groin pain [Unknown]

NARRATIVE: CASE EVENT DATE: 20150710
